FAERS Safety Report 19604775 (Version 2)
Quarter: 2022Q1

REPORT INFORMATION
  Report Type: Spontaneous
  Country: CN (occurrence: None)
  Receive Date: 20210723
  Receipt Date: 20220114
  Transmission Date: 20220423
  Serious: Yes (Hospitalization, Other)
  Sender: FDA-Public Use
  Company Number: CN-ROCHE-2873463

PATIENT
  Age: 58 Year
  Sex: Male

DRUGS (12)
  1. MABTHERA [Suspect]
     Active Substance: RITUXIMAB
     Indication: Diffuse large B-cell lymphoma
     Dosage: 29/AUG/2018, 18/SEP/2018, 22/OCT/2018, 21/NOV/2018, 25/DEC/2018, 24/JAN/2019: DAY0 R-MINICHOP
     Route: 065
  2. MABTHERA [Suspect]
     Active Substance: RITUXIMAB
     Dosage: 20-JUL-2021,10-AUG-2021,01-SEP-2021,23-SEP-2021,13-OCT-2021: R-CHOP
     Route: 065
  3. CYCLOPHOSPHAMIDE [Concomitant]
     Active Substance: CYCLOPHOSPHAMIDE
     Indication: Diffuse large B-cell lymphoma
     Dosage: 29/AUG/2018, 18/SEP/2018, 22/OCT/2018, 21/NOV/2018, 25/DEC/2018, 24/JAN/2019: DAY1 R-MINICHOP
     Route: 065
  4. CYCLOPHOSPHAMIDE [Concomitant]
     Active Substance: CYCLOPHOSPHAMIDE
     Dosage: 20-JUL-2021,10-AUG-2021,01-SEP-2021,23-SEP-2021,13-OCT-2021: R-CHOP
     Route: 065
  5. EPIRUBICIN [Concomitant]
     Active Substance: EPIRUBICIN
     Indication: Diffuse large B-cell lymphoma
     Dosage: 29/AUG/2018, 18/SEP/2018, 22/OCT/2018, 21/NOV/2018, 25/DEC/2018, 24/JAN/2019: 60MG DAY1, 50MG DAY2;
     Route: 065
  6. EPIRUBICIN [Concomitant]
     Active Substance: EPIRUBICIN
     Dosage: 20-JUL-2021,10-AUG-2021,01-SEP-2021,23-SEP-2021,13-OCT-2021: R-CHOP: 50MG DAY1, 60MG DAY2
     Route: 065
  7. PREDNISONE [Concomitant]
     Active Substance: PREDNISONE
     Indication: Diffuse large B-cell lymphoma
     Dosage: 29/AUG/2018, 18/SEP/2018, 22/OCT/2018, 21/NOV/2018, 25/DEC/2018, 24/JAN/2019: DAY1-5; R-MINICHOP
     Route: 065
  8. PREDNISONE [Concomitant]
     Active Substance: PREDNISONE
     Dosage: R MINI CHOP, 20-JUL-2021,10-AUG-2021,01-SEP-2021,23-SEP-2021,13-OCT-2021: R-CHOP
     Route: 065
  9. DEXAMETHASONE [Concomitant]
     Active Substance: DEXAMETHASONE
     Indication: Diffuse large B-cell lymphoma
     Route: 065
  10. ENTECAVIR [Concomitant]
     Active Substance: ENTECAVIR
     Indication: Hepatitis B
     Dosage: DF MEANS TABLET, PER DAY
     Route: 065
  11. VINDESINE [Concomitant]
     Active Substance: VINDESINE
     Indication: Diffuse large B-cell lymphoma
     Dosage: 20-JUL-2021,10-AUG-2021,01-SEP-2021,23-SEP-2021,13-OCT-2021: R-CHOP
     Route: 065
  12. LENALIDOMIDE [Concomitant]
     Active Substance: LENALIDOMIDE
     Indication: Diffuse large B-cell lymphoma
     Route: 065

REACTIONS (5)
  - Disease recurrence [Unknown]
  - Pneumonia [Unknown]
  - Myelosuppression [Unknown]
  - Cardiac disorder [Unknown]
  - Full blood count decreased [Unknown]
